FAERS Safety Report 9395692 (Version 1)
Quarter: 2013Q3

REPORT INFORMATION
  Report Type: Spontaneous
  Country: US (occurrence: US)
  Receive Date: 20130711
  Receipt Date: 20130711
  Transmission Date: 20140515
  Serious: No
  Sender: FDA-Public Use
  Company Number: US-BRISTOL-MYERS SQUIBB COMPANY-18836510

PATIENT
  Sex: 0

DRUGS (1)
  1. NULOJIX [Suspect]
     Indication: RENAL TRANSPLANT
     Dosage: INJ

REACTIONS (1)
  - Cytomegalovirus infection [Unknown]
